FAERS Safety Report 8763818 (Version 2)
Quarter: 2012Q4

REPORT INFORMATION
  Report Type: 
  Country: TR (occurrence: TR)
  Receive Date: 20120831
  Receipt Date: 20120911
  Transmission Date: 20130627
  Serious: Yes (Hospitalization)
  Sender: FDA-Public Use
  Company Number: TR-MYLANLABS-2012S1017560

PATIENT
  Age: 13 Year
  Sex: Female

DRUGS (6)
  1. METHOTREXATE [Suspect]
     Indication: NON-HODGKIN^S LYMPHOMA STAGE IV
     Dosage: 5 g/m2
     Route: 065
  2. CYTARABINE [Suspect]
     Indication: NON-HODGKIN^S LYMPHOMA STAGE IV
     Dosage: 100 mg/m2 on days 1 + 2
     Route: 065
  3. ETOPOSIDE [Suspect]
     Indication: NON-HODGKIN^S LYMPHOMA STAGE IV
     Dosage: 100 mg/m2 on days 1 + 2
     Route: 065
  4. FOLINIC ACID [Concomitant]
     Dosage: For eight doses as rescue therapy
     Route: 065
  5. SODIUM BICARBONATE [Concomitant]
     Dosage: 2 mEq/kg/day
     Route: 065
  6. FOLINIC ACID [Concomitant]
     Dosage: 15 mg/m2/day; rescue therapy complemented to 20 doses
     Route: 065

REACTIONS (9)
  - Intra-abdominal haemorrhage [Recovered/Resolved]
  - Thoracic haemorrhage [Recovered/Resolved]
  - Tumour lysis syndrome [Unknown]
  - Pruritus [Recovering/Resolving]
  - Hyperaemia [Recovering/Resolving]
  - Toxicity to various agents [Recovering/Resolving]
  - Mucosal inflammation [Recovering/Resolving]
  - Shock haemorrhagic [Recovering/Resolving]
  - Renal failure acute [Recovering/Resolving]
